FAERS Safety Report 12555968 (Version 1)
Quarter: 2016Q3

REPORT INFORMATION
  Report Type: Spontaneous
  Country: US (occurrence: None)
  Receive Date: 20160713
  Receipt Date: 20160713
  Transmission Date: 20161109
  Serious: Yes (Other)
  Sender: FDA-Public Use
  Company Number: None

PATIENT
  Age: 91 Year
  Sex: Female

DRUGS (4)
  1. OMEPRAZOLE. [Concomitant]
     Active Substance: OMEPRAZOLE
  2. AVASTIN [Suspect]
     Active Substance: BEVACIZUMAB
     Indication: NEOVASCULAR AGE-RELATED MACULAR DEGENERATION
     Dosage: 1.25 MG/0.05 ML SINGLE INJECTION ONCE INTRAVITREAL INJECTION
     Dates: start: 20160412, end: 20160412
  3. ENALAPRIL [Concomitant]
     Active Substance: ENALAPRIL
  4. HYDROCHLOROTHIAZIDE. [Concomitant]
     Active Substance: HYDROCHLOROTHIAZIDE

REACTIONS (5)
  - Visual acuity reduced [None]
  - Visual impairment [None]
  - Uveitis [None]
  - Reading disorder [None]
  - Pain [None]

NARRATIVE: CASE EVENT DATE: 20160412
